FAERS Safety Report 25587362 (Version 1)
Quarter: 2025Q3

REPORT INFORMATION
  Report Type: Spontaneous
  Country: US (occurrence: None)
  Receive Date: 20250721
  Receipt Date: 20250721
  Transmission Date: 20251021
  Serious: No
  Sender: FDA-CTU
  Company Number: None

PATIENT
  Age: 79 Year
  Sex: Female
  Weight: 69.75 kg

DRUGS (9)
  1. MELOXICAM [Suspect]
     Active Substance: MELOXICAM
     Indication: Bone pain
     Dosage: 90 TABLET(S) DAILY ORAL
     Route: 048
     Dates: start: 20250520, end: 20250618
  2. LEVOTHYROXINE [Concomitant]
     Active Substance: LEVOTHYROXINE
  3. VALSARTAN [Concomitant]
     Active Substance: VALSARTAN
  4. FLUOXETINE [Concomitant]
     Active Substance: FLUOXETINE HYDROCHLORIDE
  5. SINGULAIR [Concomitant]
     Active Substance: MONTELUKAST SODIUM
  6. SIMVASTATIN [Concomitant]
     Active Substance: SIMVASTATIN
  7. ESTRADIOL [Concomitant]
     Active Substance: ESTRADIOL
  8. Vitamin D daily [Concomitant]
  9. IBUPROFEN [Concomitant]
     Active Substance: IBUPROFEN

REACTIONS (7)
  - Oesophagitis [None]
  - Palatal disorder [None]
  - Noninfective gingivitis [None]
  - Epigastric discomfort [None]
  - Skin exfoliation [None]
  - Mouth swelling [None]
  - Oral infection [None]

NARRATIVE: CASE EVENT DATE: 20250604
